FAERS Safety Report 8494616-3 (Version None)
Quarter: 2012Q2

REPORT INFORMATION
  Report Type: 
  Country: None (occurrence: None)
  Receive Date: 20120405
  Receipt Date: 20110420
  Transmission Date: 20120825
  Serious: Yes (Other)
  Sender: FDA-Public Use
  Company Number: PHHY2011US34195

PATIENT
  Age: 70 Year
  Sex: Female
  Weight: 64.9 kg

DRUGS (9)
  1. HETZ [Concomitant]
  2. CORBID [Concomitant]
  3. NEKINAN [Concomitant]
  4. REQUIP [Concomitant]
  5. OSCAL (CALCIUM CARBONATE) [Concomitant]
  6. NORVASC [Concomitant]
  7. VALTREY [Concomitant]
  8. RECLAST [Suspect]
     Dosage: 5 MG/ YEAR, INTRAVENOUS
     Route: 042
     Dates: start: 20110419
  9. OUAPRIL [Concomitant]

REACTIONS (3)
  - COUGH [None]
  - NAUSEA [None]
  - BLOOD PRESSURE DECREASED [None]
